FAERS Safety Report 9813487 (Version 1)
Quarter: 2014Q1

REPORT INFORMATION
  Report Type: Spontaneous
  Country: US (occurrence: US)
  Receive Date: 20140113
  Receipt Date: 20140113
  Transmission Date: 20141002
  Serious: Yes (Congenital Anomaly)
  Sender: FDA-Public Use
  Company Number: US-FRI-1000052753

PATIENT
  Age: 0 Day
  Sex: Female

DRUGS (1)
  1. CELEXA [Suspect]
     Route: 064

REACTIONS (4)
  - Limb reduction defect [Unknown]
  - Developmental hip dysplasia [Unknown]
  - Intestinal malrotation [Unknown]
  - Tracheo-oesophageal fistula [Unknown]
